FAERS Safety Report 6292266-0 (Version None)
Quarter: 2009Q3

REPORT INFORMATION
  Report Type: 
  Country: None (occurrence: None)
  Receive Date: 20090731
  Receipt Date: 20090722
  Transmission Date: 20100115
  Serious: Yes (Other)
  Sender: FDA-Public Use
  Company Number: NL-CELGENEUS-114-50794-09070564

PATIENT
  Sex: Female
  Weight: 55.5 kg

DRUGS (4)
  1. VIDAZA [Suspect]
     Route: 058
     Dates: start: 20090602
  2. ASCAL [Concomitant]
     Indication: CARDIAC DISORDER
     Route: 065
     Dates: end: 20090616
  3. METOCLOPRAMIDE [Concomitant]
     Indication: ANTIEMETIC SUPPORTIVE CARE
     Route: 065
     Dates: end: 20090616
  4. RANITIDINE [Concomitant]
     Indication: ANTACID THERAPY
     Route: 065
     Dates: end: 20090616

REACTIONS (1)
  - ACUTE FEBRILE NEUTROPHILIC DERMATOSIS [None]
